FAERS Safety Report 9614321 (Version 1)
Quarter: 2013Q4

REPORT INFORMATION
  Report Type: Spontaneous
  Country: US (occurrence: US)
  Receive Date: 20131011
  Receipt Date: 20131011
  Transmission Date: 20140711
  Serious: Yes (Death, Other)
  Sender: FDA-Public Use
  Company Number: US-JNJFOC-20131000553

PATIENT
  Sex: 0

DRUGS (8)
  1. DOXORUBICIN [Suspect]
     Indication: HEPATOCELLULAR CARCINOMA
     Dosage: CONVENTIONAL PIAF ON DAY 1
     Route: 042
  2. DOXORUBICIN [Suspect]
     Indication: HEPATOCELLULAR CARCINOMA
     Dosage: MODIFIED PIAF ON DAY 1
     Route: 042
  3. CISPLATIN [Suspect]
     Indication: HEPATOCELLULAR CARCINOMA
     Dosage: MODIFIED PIAF, ON DAYS 1 THROUGH 4
     Route: 065
  4. CISPLATIN [Suspect]
     Indication: HEPATOCELLULAR CARCINOMA
     Dosage: CONVENTIONAL PIAF, DAY 1
     Route: 065
  5. INTERFERON ALFA 2B [Suspect]
     Indication: HEPATOCELLULAR CARCINOMA
     Dosage: CONVENTIONAL PIAF: 5MU/M2, DAYS 1 THROUGH 4
     Route: 065
  6. INTERFERON ALFA 2B [Suspect]
     Indication: HEPATOCELLULAR CARCINOMA
     Dosage: MODIFIED PIAF: 4MU/M2 DAY 1 THROUGH 4
     Route: 065
  7. 5-FU [Suspect]
     Indication: HEPATOCELLULAR CARCINOMA
     Dosage: MODIFIED PIAF AS A BOLUS INFUSION (DAY 1-4)
     Route: 042
  8. 5-FU [Suspect]
     Indication: HEPATOCELLULAR CARCINOMA
     Dosage: CONVENTIONAL PIAF, OVER 24 HOURS ON DAY 1 THROUGH 4.
     Route: 042

REACTIONS (6)
  - Death [Fatal]
  - Adverse event [Unknown]
  - Hepatotoxicity [Unknown]
  - Disease progression [Unknown]
  - Toxicity to various agents [Unknown]
  - Off label use [Unknown]
